FAERS Safety Report 24964559 (Version 1)
Quarter: 2025Q1

REPORT INFORMATION
  Report Type: Spontaneous
  Country: IN (occurrence: IN)
  Receive Date: 20250213
  Receipt Date: 20250213
  Transmission Date: 20250409
  Serious: Yes (Hospitalization, Other)
  Sender: SANOFI AVENTIS
  Company Number: IN-SA-2025SA041699

PATIENT
  Sex: Male

DRUGS (3)
  1. THYMOGLOBULIN [Suspect]
     Active Substance: LAPINE T-LYMPHOCYTE IMMUNE GLOBULIN
     Indication: ABO incompatibility
     Route: 042
     Dates: start: 20241221, end: 20241221
  2. TAKFA [Concomitant]
     Dosage: 3.5 MG, BID
     Route: 048
  3. MYCOFIT-S [Concomitant]
     Route: 048

REACTIONS (3)
  - Thrombocytopenia [Recovering/Resolving]
  - Urine output decreased [Recovering/Resolving]
  - Haemoglobin decreased [Recovering/Resolving]
